FAERS Safety Report 5840172-5 (Version None)
Quarter: 2008Q3

REPORT INFORMATION
  Report Type: 
  Country: None (occurrence: None)
  Receive Date: 20080811
  Receipt Date: 20080804
  Transmission Date: 20090109
  Serious: Yes (Death, Hospitalization)
  Sender: FDA-Public Use
  Company Number: US-JNJFOC-20080801272

PATIENT
  Sex: Male

DRUGS (2)
  1. HALDOL DECONATE [Suspect]
     Indication: DRUG USE FOR UNKNOWN INDICATION
     Route: 030
  2. PROLIXIN DECANOATE [Concomitant]
     Route: 030

REACTIONS (5)
  - AGITATION [None]
  - DEATH [None]
  - HOSPITALISATION [None]
  - MEDICATION ERROR [None]
  - OBESITY [None]
